FAERS Safety Report 9466412 (Version 1)
Quarter: 2013Q3

REPORT INFORMATION
  Report Type: Spontaneous
  Country: US (occurrence: US)
  Receive Date: 20130820
  Receipt Date: 20130820
  Transmission Date: 20140515
  Serious: No
  Sender: FDA-Public Use
  Company Number: US-BAYER-2013-100354

PATIENT
  Sex: 0

DRUGS (2)
  1. ALEVE CAPLET [Suspect]
     Indication: TOOTHACHE
     Dosage: 4 DF, UNK
     Route: 048
  2. IBUPROFEN [Concomitant]
     Dosage: 3 UNK, UNK

REACTIONS (1)
  - Extra dose administered [None]
